FAERS Safety Report 13794612 (Version 3)
Quarter: 2017Q3

REPORT INFORMATION
  Report Type: Spontaneous
  Country: US (occurrence: US)
  Receive Date: 20170726
  Receipt Date: 20170915
  Transmission Date: 20171127
  Serious: No
  Sender: FDA-Public Use
  Company Number: US-PFIZER INC-2017323007

PATIENT
  Age: 42 Year
  Sex: Female

DRUGS (1)
  1. EUCRISA [Suspect]
     Active Substance: CRISABOROLE
     Dosage: UNK, 2X/DAY (APPLY A THIN LAYER TO AFFECTED AREAS)
     Route: 061

REACTIONS (1)
  - Drug ineffective [Recovered/Resolved]
